FAERS Safety Report 5873050-6 (Version None)
Quarter: 2008Q3

REPORT INFORMATION
  Report Type: 
  Country: None (occurrence: None)
  Receive Date: 20080903
  Receipt Date: 20080827
  Transmission Date: 20090109
  Serious: Yes (Hospitalization)
  Sender: FDA-Public Use
  Company Number: 2008BI013081

PATIENT
  Age: 67 Year
  Sex: Male

DRUGS (3)
  1. AVONEX [Suspect]
     Indication: MULTIPLE SCLEROSIS
     Dosage: 30 UG; QW; IM; 30 UG; QW; IM; 30 UG; QW; IM
     Route: 030
     Dates: start: 20010206, end: 20030801
  2. AVONEX [Suspect]
     Indication: MULTIPLE SCLEROSIS
     Dosage: 30 UG; QW; IM; 30 UG; QW; IM; 30 UG; QW; IM
     Route: 030
     Dates: start: 20030801, end: 20070331
  3. AVONEX [Suspect]
     Indication: MULTIPLE SCLEROSIS
     Dosage: 30 UG; QW; IM; 30 UG; QW; IM; 30 UG; QW; IM
     Route: 030
     Dates: start: 20070501

REACTIONS (1)
  - BRADYCARDIA [None]
